FAERS Safety Report 6940688-4 (Version None)
Quarter: 2010Q3

REPORT INFORMATION
  Report Type: 
  Country: None (occurrence: None)
  Receive Date: 20100825
  Receipt Date: 20100818
  Transmission Date: 20110219
  Serious: Yes (Hospitalization)
  Sender: FDA-Public Use
  Company Number: RU-ROCHE-694732

PATIENT
  Sex: Female
  Weight: 90 kg

DRUGS (7)
  1. TOCILIZUMAB [Suspect]
     Indication: RHEUMATOID ARTHRITIS
     Dosage: LAST DOSE PRIOR TO SAE: 19 MARCH 2010, FORM: CONCENTRATE FOR INFUSION, PERMANENTLY DISCONTINUED
     Route: 042
     Dates: start: 20100118, end: 20100414
  2. METHOTREXATE [Suspect]
     Indication: RHEUMATOID ARTHRITIS
     Dosage: LAST DOSE PRIOR TO SAE: 22 MARCH 2010, PERMANENTLY DISCONTINUED
     Route: 048
     Dates: start: 20100118, end: 20100414
  3. VANCOMYCIN [Concomitant]
     Dates: end: 20100410
  4. OFLOXACIN [Concomitant]
     Dates: start: 20100411, end: 20100420
  5. PREDNISOLON [Concomitant]
     Dates: start: 20100401, end: 20100426
  6. NYSTATIN [Concomitant]
     Dates: start: 20100401, end: 20100426
  7. AMIKACIN [Concomitant]
     Dosage: DRUG REPORTED AS AMYCACIN
     Dates: start: 20100327, end: 20100405

REACTIONS (1)
  - PLEURAL INFECTION [None]
